FAERS Safety Report 5292611-9 (Version None)
Quarter: 2007Q2

REPORT INFORMATION
  Report Type: 
  Country: None (occurrence: None)
  Receive Date: 20070404
  Receipt Date: 20070323
  Transmission Date: 20071010
  Serious: Yes (Other)
  Sender: FDA-Public Use
  Company Number: 2007SP005552

PATIENT
  Age: 52 Year
  Sex: Male
  Weight: 75 kg

DRUGS (20)
  1. PEG-INTRON [Suspect]
     Indication: HEPATITIS C
     Dosage: SEE IMAGE
     Route: 058
     Dates: start: 20060414, end: 20060421
  2. PEG-INTRON [Suspect]
     Indication: HEPATITIS C
     Dosage: SEE IMAGE
     Route: 058
     Dates: start: 20060428, end: 20060519
  3. PEG-INTRON [Suspect]
     Indication: HEPATITIS C
     Dosage: SEE IMAGE
     Route: 058
     Dates: start: 20060526, end: 20060526
  4. PEG-INTRON [Suspect]
     Indication: HEPATITIS C
     Dosage: SEE IMAGE
     Route: 058
     Dates: start: 20060602, end: 20060609
  5. REBETOL [Suspect]
     Indication: HEPATITIS C
     Dosage: 200 MG; QD; PO
     Route: 048
     Dates: start: 20060414, end: 20060613
  6. NOVORAPID MIX [Concomitant]
  7. PROHEPARUM [Concomitant]
  8. URDESTON [Concomitant]
  9. SALOBEL [Concomitant]
  10. POTOREND [Concomitant]
  11. PROMAC [Concomitant]
  12. FAMOSTAGINE [Concomitant]
  13. MAGNESIUM OXIDE [Concomitant]
  14. MAO-TO [Concomitant]
  15. ALLOID G [Concomitant]
  16. BASEN [Concomitant]
  17. MYSLEE [Concomitant]
  18. ETICALM [Concomitant]
  19. NEO-MINOPHAGEN C [Concomitant]
  20. KN-3B [Concomitant]

REACTIONS (4)
  - ASPARTATE AMINOTRANSFERASE INCREASED [None]
  - BLOOD CHOLESTEROL DECREASED [None]
  - GAMMA-GLUTAMYLTRANSFERASE INCREASED [None]
  - PLATELET COUNT DECREASED [None]
